FAERS Safety Report 6784148-2 (Version None)
Quarter: 2010Q2

REPORT INFORMATION
  Report Type: 
  Country: None (occurrence: None)
  Receive Date: 20100622
  Receipt Date: 20100614
  Transmission Date: 20101027
  Serious: No
  Sender: FDA-Public Use
  Company Number: US-JNJFOC-20100604621

PATIENT
  Sex: Female
  Weight: 86.18 kg

DRUGS (3)
  1. SANDOZ FENTANYL TRANSDERMAL SYSTEM [Suspect]
     Indication: MULTIPLE SCLEROSIS
     Dosage: NDC# 0781-7114-55
     Route: 062
  2. SANDOZ FENTANYL TRANSDERMAL SYSTEM [Suspect]
     Indication: BONE PAIN
     Dosage: NDC# 0781-7114-55
     Route: 062
  3. UNKNOWN MEDICATION [Concomitant]
     Indication: DRUG USE FOR UNKNOWN INDICATION
     Route: 065

REACTIONS (2)
  - DRUG ADMINISTERED AT INAPPROPRIATE SITE [None]
  - WRONG TECHNIQUE IN DRUG USAGE PROCESS [None]
